FAERS Safety Report 11110849 (Version 2)
Quarter: 2015Q3

REPORT INFORMATION
  Report Type: Spontaneous
  Country: DE (occurrence: DE)
  Receive Date: 20150513
  Receipt Date: 20150713
  Transmission Date: 20151125
  Serious: Yes (Other)
  Sender: FDA-Public Use
  Company Number: DE-009507513-1505DEU000801

PATIENT
  Age: 58 Year
  Sex: Male

DRUGS (1)
  1. INTRON A [Suspect]
     Active Substance: INTERFERON ALFA-2B
     Indication: MALIGNANT MELANOMA
     Dosage: STRENGTH: 23 MILLION I.U. AT THE BEGINNING TO 3X3 MILLION I.U. AT THE END
     Route: 058
     Dates: start: 2004, end: 2007

REACTIONS (2)
  - Aortic dissection [Unknown]
  - Aortic disorder [Unknown]

NARRATIVE: CASE EVENT DATE: 2012
